FAERS Safety Report 5901854-X (Version None)
Quarter: 2008Q3

REPORT INFORMATION
  Report Type: 
  Country: None (occurrence: None)
  Receive Date: 20080929
  Receipt Date: 20080131
  Transmission Date: 20090109
  Serious: Yes (Hospitalization)
  Sender: FDA-Public Use
  Company Number: FR-BAYER-200812701GPV

PATIENT
  Age: 50 Year
  Sex: Male

DRUGS (2)
  1. FLUDARABINE PHOSPHATE [Suspect]
     Indication: B-CELL SMALL LYMPHOCYTIC LYMPHOMA
     Route: 065
  2. OFATUMUMAB [Concomitant]
     Indication: B-CELL SMALL LYMPHOCYTIC LYMPHOMA
     Route: 042

REACTIONS (1)
  - HAEMOLYTIC ANAEMIA [None]
